FAERS Safety Report 8425218-2 (Version None)
Quarter: 2012Q2

REPORT INFORMATION
  Report Type: 
  Country: None (occurrence: None)
  Receive Date: 20120611
  Receipt Date: 20120529
  Transmission Date: 20120825
  Serious: Yes (Other)
  Sender: FDA-Public Use
  Company Number: US-ELI_LILLY_AND_COMPANY-US201109006331

PATIENT
  Sex: Female

DRUGS (5)
  1. FORTEO [Suspect]
     Dosage: 20 UG, QD
     Dates: start: 20110911
  2. CALCIUM [Concomitant]
     Indication: PRODUCT USED FOR UNKNOWN INDICATION
  3. FORTEO [Suspect]
     Indication: OSTEOPOROSIS
     Dosage: 20 UG, QD
     Route: 058
     Dates: start: 20110911
  4. LYRICA [Concomitant]
     Indication: PRODUCT USED FOR UNKNOWN INDICATION
     Dosage: UNK
     Dates: start: 20110916
  5. ANALGESICS [Concomitant]
     Indication: PAIN
     Route: 008

REACTIONS (23)
  - TREMOR [None]
  - FEAR [None]
  - INJECTION SITE ERYTHEMA [None]
  - VITAMIN D DECREASED [None]
  - NERVE INJURY [None]
  - OEDEMA PERIPHERAL [None]
  - MALAISE [None]
  - INJECTION SITE PAIN [None]
  - PAIN [None]
  - CARDIAC DISORDER [None]
  - ABDOMINAL PAIN [None]
  - FATIGUE [None]
  - PROCEDURAL PAIN [None]
  - DIARRHOEA [None]
  - OPEN FRACTURE [None]
  - DRY MOUTH [None]
  - INJECTION SITE RASH [None]
  - NAUSEA [None]
  - ABDOMINAL DISCOMFORT [None]
  - DECREASED APPETITE [None]
  - VISION BLURRED [None]
  - EYE SWELLING [None]
  - FLATULENCE [None]
